FAERS Safety Report 5915711-6 (Version None)
Quarter: 2008Q4

REPORT INFORMATION
  Report Type: 
  Country: None (occurrence: None)
  Receive Date: 20081010
  Receipt Date: 20081002
  Transmission Date: 20090506
  Serious: Yes (Hospitalization)
  Sender: FDA-Public Use
  Company Number: US-GENENTECH-269283

PATIENT
  Sex: Female
  Weight: 89 kg

DRUGS (3)
  1. BEVACIZUMAB [Suspect]
     Indication: BREAST CANCER METASTATIC
     Dosage: 886 MG, UNK
     Route: 042
     Dates: start: 20080905
  2. ABRAXANE [Suspect]
     Indication: BREAST CANCER METASTATIC
     Dosage: 291 MG, UNK
     Route: 042
     Dates: start: 20080905
  3. GEMZAR [Suspect]
     Indication: BREAST CANCER METASTATIC
     Dosage: 2910 MG, UNK
     Route: 042
     Dates: start: 20080905

REACTIONS (1)
  - JAUNDICE [None]
